FAERS Safety Report 4519214-5 (Version None)
Quarter: 2004Q4

REPORT INFORMATION
  Report Type: 
  Country: None (occurrence: None)
  Receive Date: 20041201
  Receipt Date: 20041118
  Transmission Date: 20050328
  Serious: Yes (Disabling)
  Sender: FDA-Public Use
  Company Number: 2004SE06435

PATIENT
  Age: 83 Year
  Sex: Female
  Weight: 47 kg

DRUGS (4)
  1. BLOPRESS [Suspect]
     Indication: HYPERTENSION
     Dosage: 4 MG DAILY PO
     Route: 048
     Dates: start: 20020417, end: 20031216
  2. BLOPRESS [Suspect]
     Indication: HYPERTENSION
     Dosage: 8 MG DAILY PO
     Route: 048
     Dates: start: 20031217
  3. CALCIUM CHANNEL BLOCKERS [Concomitant]
  4. INSULINS AND ANALOGUES [Concomitant]

REACTIONS (2)
  - ATRIAL FIBRILLATION [None]
  - BLOOD PRESSURE DIASTOLIC DECREASED [None]
